FAERS Safety Report 9617306 (Version 2)
Quarter: 2013Q4

REPORT INFORMATION
  Report Type: Report from Study
  Country: FR (occurrence: FR)
  Receive Date: 20131011
  Receipt Date: 20131011
  Transmission Date: 20140711
  Serious: Yes (Hospitalization)
  Sender: FDA-Public Use
  Company Number: FR-ABBVIE-08P-056-0478268-00

PATIENT
  Age: 32 Year
  Sex: Female
  Weight: 54 kg

DRUGS (3)
  1. HUMIRA [Suspect]
     Indication: CROHN^S DISEASE
     Route: 058
     Dates: start: 20080708, end: 20080722
  2. HUMIRA [Suspect]
     Route: 058
     Dates: start: 20081001, end: 20120102
  3. SOLUPRED [Concomitant]
     Indication: BEHCET^S SYNDROME
     Dates: start: 20080804, end: 20080808

REACTIONS (2)
  - Behcet^s syndrome [Recovered/Resolved]
  - Aphthous stomatitis [Recovered/Resolved]
